FAERS Safety Report 15348512 (Version 1)
Quarter: 2018Q3

REPORT INFORMATION
  Report Type: Spontaneous
  Country: US (occurrence: US)
  Receive Date: 20180904
  Receipt Date: 20180904
  Transmission Date: 20181010
  Serious: No
  Sender: FDA-Public Use
  Company Number: US-OREXO US, INC.-ORE201803-000028

PATIENT
  Sex: Male
  Weight: 92.98 kg

DRUGS (1)
  1. ZUBSOLV [Suspect]
     Active Substance: BUPRENORPHINE HYDROCHLORIDE\NALOXONE HYDROCHLORIDE
     Indication: DRUG DEPENDENCE
     Dosage: 11.4/2.9 MG ONCE DAILY
     Dates: start: 20180228

REACTIONS (1)
  - Drug effect incomplete [Unknown]
